FAERS Safety Report 11638464 (Version 1)
Quarter: 2015Q4

REPORT INFORMATION
  Report Type: Report from Study
  Country: JP (occurrence: JP)
  Receive Date: 20151016
  Receipt Date: 20151016
  Transmission Date: 20160304
  Serious: Yes (Hospitalization)
  Sender: FDA-Public Use
  Company Number: JP-GLAXOSMITHKLINE-JP2015GSK146825

PATIENT
  Age: 66 Year
  Sex: Female
  Weight: 39 kg

DRUGS (10)
  1. ROPINIROLE HYDROCHLORIDE. [Suspect]
     Active Substance: ROPINIROLE HYDROCHLORIDE
     Dosage: 12 MG, QD
     Route: 048
     Dates: start: 20141001, end: 20150609
  2. MADOPAR [Concomitant]
     Active Substance: BENSERAZIDE HYDROCHLORIDE\LEVODOPA
     Dosage: UNK
  3. LOXOPROFEN [Concomitant]
     Active Substance: LOXOPROFEN
     Dosage: UNK
  4. ROPINIROLE HYDROCHLORIDE. [Suspect]
     Active Substance: ROPINIROLE HYDROCHLORIDE
     Dosage: 4 MG, TID
     Route: 048
     Dates: start: 20140904, end: 20140930
  5. NEUPRO [Concomitant]
     Active Substance: ROTIGOTINE
     Dosage: UNK
     Dates: start: 20140630
  6. TRERIEF [Concomitant]
     Active Substance: ZONISAMIDE
     Dosage: UNK
  7. SYMMETREL [Concomitant]
     Active Substance: AMANTADINE HYDROCHLORIDE
     Dosage: UNK
  8. ROPINIROLE HYDROCHLORIDE. [Suspect]
     Active Substance: ROPINIROLE HYDROCHLORIDE
     Indication: PARKINSON^S DISEASE
     Dosage: 12 MG, QD
     Route: 048
     Dates: start: 20140903
  9. NAUZELIN [Suspect]
     Active Substance: DOMPERIDONE
     Indication: NAUSEA
     Dosage: UNK
     Route: 048
  10. INVESTIGATIONAL DRUG [Suspect]
     Active Substance: INVESTIGATIONAL PRODUCT
     Indication: PARKINSON^S DISEASE
     Dosage: 20 MG, QD
     Route: 048
     Dates: start: 20150612

REACTIONS (1)
  - Camptocormia [Recovering/Resolving]

NARRATIVE: CASE EVENT DATE: 20150608
